FAERS Safety Report 14262072 (Version 1)
Quarter: 2017Q4

REPORT INFORMATION
  Report Type: Spontaneous
  Country: GB (occurrence: GB)
  Receive Date: 20171208
  Receipt Date: 20171208
  Transmission Date: 20180321
  Serious: Yes (Other)
  Sender: FDA-Public Use
  Company Number: GB-SA-2017SA243381

PATIENT
  Age: 70 Year
  Sex: Male
  Weight: 109 kg

DRUGS (12)
  1. TAPENTADOL [Concomitant]
     Active Substance: TAPENTADOL
  2. AMLODIPINE [Concomitant]
     Active Substance: AMLODIPINE BESYLATE
  3. HYDRALAZINE [Concomitant]
     Active Substance: HYDRALAZINE HYDROCHLORIDE
  4. LANSOPRAZOLE. [Concomitant]
     Active Substance: LANSOPRAZOLE
  5. LANTUS [Suspect]
     Active Substance: INSULIN GLARGINE
     Dosage: DOSE: 40 IU, FREQUENCY NOT MENTIONED
     Route: 051
     Dates: start: 20170803
  6. DOXAZOSIN [Concomitant]
     Active Substance: DOXAZOSIN\DOXAZOSIN MESYLATE
  7. FLECAINIDE [Concomitant]
     Active Substance: FLECAINIDE
  8. ATORVASTATIN [Concomitant]
     Active Substance: ATORVASTATIN
  9. FULTIUM-D3 [Concomitant]
     Active Substance: CHOLECALCIFEROL
  10. CLOPIDOGREL [Concomitant]
     Active Substance: CLOPIDOGREL BISULFATE
  11. MONTELUKAST [Concomitant]
     Active Substance: MONTELUKAST SODIUM
  12. CO-DYDRAMOL [Concomitant]
     Active Substance: ACETAMINOPHEN\DIHYDROCODEINE

REACTIONS (1)
  - Dysgeusia [Not Recovered/Not Resolved]

NARRATIVE: CASE EVENT DATE: 20170817
